FAERS Safety Report 4322780-6 (Version None)
Quarter: 2004Q1

REPORT INFORMATION
  Report Type: 
  Country: None (occurrence: None)
  Receive Date: 20040324
  Receipt Date: 20040312
  Transmission Date: 20041129
  Serious: Yes (Hospitalization)
  Sender: FDA-Public Use
  Company Number: FR-ROCHE-361775

PATIENT
  Age: 9 Month
  Sex: Male

DRUGS (3)
  1. ROCEPHIN [Suspect]
     Indication: LUNG DISORDER
     Route: 042
     Dates: start: 19960519, end: 19960527
  2. AMIKACIN [Suspect]
     Indication: LUNG DISORDER
     Route: 042
     Dates: start: 19960519, end: 19960525
  3. CALCIUM [Concomitant]

REACTIONS (5)
  - C-REACTIVE PROTEIN DECREASED [None]
  - MYOCLONUS [None]
  - NODDING OF HEAD [None]
  - NYSTAGMUS [None]
  - WHITE BLOOD CELL COUNT DECREASED [None]
